FAERS Safety Report 5820560-3 (Version None)
Quarter: 2008Q3

REPORT INFORMATION
  Report Type: 
  Country: None (occurrence: None)
  Receive Date: 20080724
  Receipt Date: 20071030
  Transmission Date: 20090109
  Serious: No
  Sender: FDA-Public Use
  Company Number: A0690578A

PATIENT
  Age: 57 Year
  Sex: Female

DRUGS (4)
  1. AVANDIA [Suspect]
     Dosage: 4MG PER DAY
     Route: 048
     Dates: start: 20070816, end: 20071024
  2. LIPITOR [Concomitant]
  3. GLUCOTROL [Concomitant]
  4. ACCUPRIL [Concomitant]

REACTIONS (1)
  - HEADACHE [None]
